FAERS Safety Report 7925528-9 (Version None)
Quarter: 2011Q4

REPORT INFORMATION
  Report Type: 
  Country: None (occurrence: None)
  Receive Date: 20111118
  Receipt Date: 20110406
  Transmission Date: 20120403
  Serious: No
  Sender: FDA-Public Use
  Company Number: US-AMGEN-USASP2011018929

PATIENT
  Age: 67 Year
  Sex: Female

DRUGS (1)
  1. ENBREL [Suspect]
     Indication: RHEUMATOID ARTHRITIS
     Dosage: 25 MG, QWK
     Dates: start: 20040601

REACTIONS (6)
  - PERINEAL ULCERATION [None]
  - FOOD POISONING [None]
  - NAUSEA [None]
  - NASOPHARYNGITIS [None]
  - VOMITING [None]
  - DIARRHOEA [None]
